FAERS Safety Report 6338272-9 (Version None)
Quarter: 2009Q3

REPORT INFORMATION
  Report Type: 
  Country: None (occurrence: None)
  Receive Date: 20090902
  Receipt Date: 20090825
  Transmission Date: 20100115
  Serious: Yes (Hospitalization, Other)
  Sender: FDA-Public Use
  Company Number: JP-WATSON-2009-06915

PATIENT
  Sex: Male

DRUGS (5)
  1. RAPAFLO [Suspect]
     Indication: BENIGN PROSTATIC HYPERPLASIA
     Dosage: 4 MG, DAILY
     Route: 048
     Dates: start: 20090530, end: 20090703
  2. RAPAFLO [Suspect]
     Dosage: 4 MG, BID
     Route: 048
     Dates: start: 20090220, end: 20090529
  3. AMLODIPINE [Concomitant]
     Indication: HYPERTENSION
     Dosage: 5 MG, DAILY
     Route: 048
     Dates: start: 20040105
  4. ALINAMIN                           /00274801/ [Concomitant]
     Indication: NEURALGIA
     Dosage: 75 MG, DAILY
     Route: 048
     Dates: start: 20030913, end: 20090529
  5. JUVELA                             /00110503/ [Concomitant]
     Indication: PERIPHERAL VASCULAR DISORDER
     Dosage: 150 MG, DAILY
     Route: 048
     Dates: start: 20070811, end: 20090529

REACTIONS (5)
  - ACUTE MYELOID LEUKAEMIA [None]
  - ANAEMIA [None]
  - PLATELET COUNT DECREASED [None]
  - PROSTATIC SPECIFIC ANTIGEN INCREASED [None]
  - WHITE BLOOD CELL COUNT DECREASED [None]
